FAERS Safety Report 12095561 (Version 3)
Quarter: 2016Q2

REPORT INFORMATION
  Report Type: Spontaneous
  Country: IT (occurrence: IT)
  Receive Date: 20160219
  Receipt Date: 20160420
  Transmission Date: 20160815
  Serious: Yes (Hospitalization)
  Sender: FDA-Public Use
  Company Number: IT-ABBVIE-16P-083-1561653-00

PATIENT
  Age: 55 Year
  Sex: Male

DRUGS (3)
  1. VIEKIRAX [Suspect]
     Active Substance: OMBITASVIR\PARITAPREVIR\RITONAVIR
     Indication: PRODUCT USED FOR UNKNOWN INDICATION
     Route: 048
     Dates: start: 20151024
  2. EXVIERA [Suspect]
     Active Substance: DASABUVIR
     Indication: PRODUCT USED FOR UNKNOWN INDICATION
     Route: 048
     Dates: start: 20151024, end: 20160118
  3. REBETOL [Concomitant]
     Active Substance: RIBAVIRIN
     Indication: PRODUCT USED FOR UNKNOWN INDICATION
     Route: 048
     Dates: start: 20151024, end: 20160118

REACTIONS (6)
  - Hyperbilirubinaemia [Unknown]
  - Jaundice cholestatic [Recovering/Resolving]
  - Abdominal pain [Recovered/Resolved]
  - Hepatic failure [Recovering/Resolving]
  - Pruritus [Unknown]
  - Biliary colic [Recovering/Resolving]

NARRATIVE: CASE EVENT DATE: 201601
